FAERS Safety Report 13911122 (Version 1)
Quarter: 2017Q3

REPORT INFORMATION
  Report Type: Spontaneous
  Country: US (occurrence: None)
  Receive Date: 20170828
  Receipt Date: 20170828
  Transmission Date: 20171127
  Serious: Yes (Other)
  Sender: FDA-Public Use
  Company Number: None

PATIENT
  Age: 70 Year
  Sex: Female
  Weight: 70.31 kg

DRUGS (7)
  1. LEVOFLOXACIN. [Suspect]
     Active Substance: LEVOFLOXACIN
     Indication: OROPHARYNGEAL PAIN
     Dosage: DOSE - RECEIVED 5 - 1 PER DAY?FREQUENCY - ANYTIME
     Route: 048
     Dates: start: 20170803, end: 20170809
  2. LEVOTHYROXINE. [Concomitant]
     Active Substance: LEVOTHYROXINE
  3. ESTRADIOL. [Concomitant]
     Active Substance: ESTRADIOL
  4. TRIAMTERENE. [Concomitant]
     Active Substance: TRIAMTERENE
  5. VITAMIN B12 [Concomitant]
     Active Substance: CYANOCOBALAMIN
  6. TYLENOL [Concomitant]
     Active Substance: ACETAMINOPHEN
  7. VALACYCLOVIR [Concomitant]
     Active Substance: VALACYCLOVIR HYDROCHLORIDE

REACTIONS (2)
  - Diarrhoea [None]
  - Bladder disorder [None]

NARRATIVE: CASE EVENT DATE: 20170803
